FAERS Safety Report 5112516-3 (Version None)
Quarter: 2006Q3

REPORT INFORMATION
  Report Type: 
  Country: None (occurrence: None)
  Receive Date: 20060920
  Receipt Date: 20060920
  Transmission Date: 20061208
  Serious: Yes (Other)
  Sender: FDA-Public Use
  Company Number: None

PATIENT
  Sex: Female
  Weight: 68.0396 kg

DRUGS (6)
  1. FENTANYL TRANSDERMAL SYSTEM [Suspect]
     Indication: PAIN
     Dosage: 50MCG EVERY 72 HOURS APPLIED TO THE SKIN
     Dates: start: 20060628, end: 20060714
  2. HYDROMORPHONE HCL [Concomitant]
  3. TRIAZOLAM [Concomitant]
  4. SEROQUEL [Concomitant]
  5. EFFEXOR XR [Concomitant]
  6. MORPHINE SULFER TABS [Concomitant]

REACTIONS (5)
  - APPLICATION SITE ERYTHEMA [None]
  - APPLICATION SITE EXCORIATION [None]
  - APPLICATION SITE PRURITUS [None]
  - PHARMACEUTICAL PRODUCT COMPLAINT [None]
  - SKIN IRRITATION [None]
